FAERS Safety Report 8104504-X (Version None)
Quarter: 2012Q1

REPORT INFORMATION
  Report Type: 
  Country: None (occurrence: None)
  Receive Date: 20120201
  Receipt Date: 20120126
  Transmission Date: 20120608
  Serious: Yes (Hospitalization)
  Sender: FDA-Public Use
  Company Number: DE-B.I. PHARMACEUTICALS,INC./RIDGEFIELD-2012-DE-00296DE

PATIENT
  Sex: Male
  Weight: 78 kg

DRUGS (1)
  1. PRADAXA [Suspect]
     Indication: HIP ARTHROPLASTY
     Dosage: 220 MG
     Dates: start: 20120124

REACTIONS (5)
  - RESTLESSNESS [None]
  - VERTIGO [None]
  - FLUSHING [None]
  - HEADACHE [None]
  - INSOMNIA [None]
